FAERS Safety Report 25436310 (Version 1)
Quarter: 2025Q2

REPORT INFORMATION
  Report Type: Other
  Country: CN (occurrence: CN)
  Receive Date: 20250614
  Receipt Date: 20250614
  Transmission Date: 20250717
  Serious: Yes (Death, Hospitalization)
  Sender: ANI
  Company Number: CN-ANIPHARMA-023212

PATIENT
  Age: 71 Year
  Sex: Male

DRUGS (19)
  1. CLOPIDOGREL [Suspect]
     Active Substance: CLOPIDOGREL BISULFATE
     Indication: Acute myocardial infarction
  2. PACLITAXEL [Concomitant]
     Active Substance: PACLITAXEL
     Indication: Squamous cell carcinoma of lung
  3. CISPLATIN [Concomitant]
     Active Substance: CISPLATIN
     Indication: Squamous cell carcinoma of lung
  4. GEMCITABINE [Concomitant]
     Active Substance: GEMCITABINE
     Indication: Squamous cell carcinoma of lung
  5. SINTILIMAB [Concomitant]
     Active Substance: SINTILIMAB
     Indication: Squamous cell carcinoma of lung
  6. ASPIRIN [Concomitant]
     Active Substance: ASPIRIN
     Indication: Prophylaxis
  7. ATORVASTATIN [Concomitant]
     Active Substance: ATORVASTATIN
     Indication: Prophylaxis
  8. UBIDECARENONE [Concomitant]
     Active Substance: UBIDECARENONE
     Indication: Cardiovascular event prophylaxis
  9. NICOTINAMIDE [Concomitant]
     Active Substance: NIACINAMIDE
     Indication: Cardiovascular event prophylaxis
  10. METOPROLOL TARTRATE [Concomitant]
     Active Substance: METOPROLOL TARTRATE
     Indication: Prophylaxis
  11. ESMOLOL [Concomitant]
     Active Substance: ESMOLOL HYDROCHLORIDE
     Indication: Prophylaxis
  12. NESIRITIDE [Concomitant]
     Active Substance: NESIRITIDE
     Indication: Cardiac failure
  13. PIPERACILLIN [Concomitant]
     Active Substance: PIPERACILLIN
     Indication: Anti-infective therapy
  14. TAZOBACTAM [Concomitant]
     Active Substance: TAZOBACTAM
     Indication: Anti-infective therapy
  15. MEROPENEM [Concomitant]
     Active Substance: MEROPENEM
     Indication: Anti-infective therapy
  16. immune-globulin [Concomitant]
     Indication: Immune-mediated myocarditis
  17. METHYLPREDNISOLONE SODIUM SUCCINATE [Concomitant]
     Active Substance: METHYLPREDNISOLONE SODIUM SUCCINATE
     Indication: Immune-mediated myocarditis
  18. METHYLPREDNISOLONE SODIUM SUCCINATE [Concomitant]
     Active Substance: METHYLPREDNISOLONE SODIUM SUCCINATE
     Indication: Immune-mediated myocarditis
  19. ASPIRIN [Concomitant]
     Active Substance: ASPIRIN
     Indication: Acute myocardial infarction

REACTIONS (1)
  - Drug ineffective [Fatal]
